FAERS Safety Report 4364539-X (Version None)
Quarter: 2004Q2

REPORT INFORMATION
  Report Type: 
  Country: None (occurrence: None)
  Receive Date: 20040513
  Receipt Date: 20030702
  Transmission Date: 20050107
  Serious: Yes (Hospitalization)
  Sender: FDA-Public Use
  Company Number: 200316171US

PATIENT
  Age: 28 Year
  Sex: Female

DRUGS (1)
  1. DDAVP [Suspect]
     Indication: VON WILLEBRAND'S DISEASE
     Dosage: IV
     Route: 042

REACTIONS (3)
  - ANAPHYLACTIC REACTION [None]
  - FLUSHING [None]
  - URTICARIA [None]
